FAERS Safety Report 4637574-1 (Version None)
Quarter: 2005Q2

REPORT INFORMATION
  Report Type: 
  Country: None (occurrence: None)
  Receive Date: 20050418
  Receipt Date: 20050214
  Transmission Date: 20051028
  Serious: Yes (Life-Threatening)
  Sender: FDA-Public Use
  Company Number: JP-BOEHRINGER INGELHEIM PHARMACEUTICALS, INC.-2005-BP-02697NB

PATIENT
  Sex: Female
  Weight: 46 kg

DRUGS (8)
  1. MICARDIS [Suspect]
     Indication: HYPERTENSION
     Route: 048
     Dates: start: 20041124
  2. LOXONIN [Suspect]
     Indication: BACK PAIN
     Route: 048
     Dates: start: 20050207
  3. LENDORM [Concomitant]
     Route: 048
     Dates: start: 20030324
  4. CYANOCOBALAMIN [Concomitant]
     Route: 048
     Dates: start: 20041124
  5. MERISLON [Concomitant]
     Route: 048
     Dates: start: 20041227
  6. CEPHADOL [Concomitant]
     Route: 048
     Dates: start: 20041227
  7. RIZE [Concomitant]
     Route: 048
     Dates: start: 20030324
  8. SELBEX [Concomitant]
     Route: 048
     Dates: start: 20030324

REACTIONS (3)
  - FACE OEDEMA [None]
  - OEDEMA PERIPHERAL [None]
  - RENAL IMPAIRMENT [None]
